FAERS Safety Report 10201703 (Version 2)
Quarter: 2014Q2

REPORT INFORMATION
  Report Type: Spontaneous
  Country: US (occurrence: US)
  Receive Date: 20140528
  Receipt Date: 20140528
  Transmission Date: 20141212
  Serious: No
  Sender: FDA-Public Use
  Company Number: US-BRISTOL-MYERS SQUIBB COMPANY-18935817

PATIENT
  Sex: Male

DRUGS (4)
  1. METFORMIN HCL [Suspect]
  2. LEVEMIR [Suspect]
  3. VICTOZA [Suspect]
  4. GLYBURIDE [Suspect]

REACTIONS (4)
  - Blood glucose increased [Unknown]
  - Glycosylated haemoglobin increased [Unknown]
  - Renal impairment [Unknown]
  - Drug ineffective [Unknown]
